FAERS Safety Report 4645215-2 (Version None)
Quarter: 2005Q2

REPORT INFORMATION
  Report Type: 
  Country: None (occurrence: None)
  Receive Date: 20050331
  Receipt Date: 20050124
  Transmission Date: 20051028
  Serious: Yes (Death)
  Sender: FDA-Public Use
  Company Number: 04P-163-0281259-00

PATIENT
  Age: 79 Year
  Sex: Male

DRUGS (21)
  1. HUMIRA [Suspect]
     Indication: RHEUMATOID ARTHRITIS
     Dosage: 40 MG, 1 IN 2 WK, SUBCUTANEOUS
     Route: 058
     Dates: start: 20040219
  2. ZOCOR [Concomitant]
  3. GEMFIBROZIL [Concomitant]
  4. LEFLUNOMIDE [Concomitant]
  5. PREDNISONE TAB [Concomitant]
  6. FOLIC ACID [Concomitant]
  7. CALCIUM 500-D [Concomitant]
  8. ALENDRONATE SODIUM [Concomitant]
  9. MVT [Concomitant]
  10. RABEPRAZOLE SODIUM [Concomitant]
  11. LISINOPRIL [Concomitant]
  12. ATENOLOL [Concomitant]
  13. FUROSEMIDE [Concomitant]
  14. ECA [Concomitant]
  15. POTASSIUM CHLORIDE [Concomitant]
  16. NITROGLYCERIN [Concomitant]
  17. POTASSIUM CHLORIDE [Concomitant]
  18. SALBUTAMOL [Concomitant]
  19. NASALIDE NS [Concomitant]
  20. NITROGLYCERIN [Concomitant]
  21. ALBUTEROL [Concomitant]

REACTIONS (1)
  - PARAESTHESIA [None]
